FAERS Safety Report 9363408 (Version 3)
Quarter: 2013Q4

REPORT INFORMATION
  Report Type: Spontaneous
  Country: US (occurrence: US)
  Receive Date: 20130624
  Receipt Date: 20131105
  Transmission Date: 20140711
  Serious: Yes (Hospitalization, Other)
  Sender: FDA-Public Use
  Company Number: US-BAYER-2013-074591

PATIENT
  Age: 22 Year
  Sex: Female
  Weight: 90.7 kg

DRUGS (6)
  1. MIRENA [Suspect]
     Indication: CONTRACEPTION
     Dosage: 20 MCG/24HR, CONT
     Route: 015
     Dates: start: 20120516, end: 20130129
  2. PRENATAL VITAMINS [VIT C,VIT H,MIN NOS,VIT PP,RETINOL,VIT E,VIT B [Concomitant]
     Dosage: ONE TABLET EVERY DAY
     Route: 048
  3. DOCUSATE SODIUM [Concomitant]
     Indication: CONSTIPATION
     Dosage: 240 MG, EVERYDAY
     Route: 048
  4. ASCORBIC ACID [Concomitant]
     Dosage: 500 MG, EVERYDAY
     Route: 048
  5. FERROUS SULFATE [Concomitant]
     Dosage: 325 MG, THREE TIMES A DAY WITH FOOD
     Route: 048
  6. RHOGAM [Concomitant]
     Dosage: UNK

REACTIONS (8)
  - Uterine perforation [None]
  - Device issue [None]
  - Pregnancy with contraceptive device [Recovered/Resolved]
  - Drug ineffective [None]
  - Abortion spontaneous [None]
  - Injury [None]
  - Pain [None]
  - Emotional distress [None]
